FAERS Safety Report 17511989 (Version 1)
Quarter: 2020Q1

REPORT INFORMATION
  Report Type: Spontaneous
  Country: US (occurrence: US)
  Receive Date: 20200307
  Receipt Date: 20200307
  Transmission Date: 20200409
  Serious: Yes (Death, Life-Threatening)
  Sender: FDA-Public Use
  Company Number: US-TEVA-2020-US-1194844

PATIENT
  Age: 80 Year
  Sex: Male

DRUGS (6)
  1. MYLAN^S LEUCOVORIN [Suspect]
     Active Substance: LEUCOVORIN CALCIUM
     Route: 065
  2. OXALIPLATIN. [Suspect]
     Active Substance: OXALIPLATIN
     Route: 065
  3. LECOVORIN CALCIUM [Suspect]
     Active Substance: LEUCOVORIN CALCIUM
     Route: 065
  4. OXALIPLATIN MERITHEAL [Suspect]
     Active Substance: OXALIPLATIN
     Route: 065
  5. OXALIPLATIN INGENUS [Suspect]
     Active Substance: OXALIPLATIN
     Route: 065
  6. OXALIPLATIN INGENUS [Suspect]
     Active Substance: OXALIPLATIN
     Route: 065

REACTIONS (10)
  - Death [Fatal]
  - Hyperhidrosis [Unknown]
  - Retching [Unknown]
  - Tachycardia [Unknown]
  - Pallor [Unknown]
  - Slow response to stimuli [Unknown]
  - Oxygen saturation decreased [Unknown]
  - Dizziness [Unknown]
  - Dyspnoea [Unknown]
  - Blood pressure immeasurable [Unknown]

NARRATIVE: CASE EVENT DATE: 20200217
